FAERS Safety Report 15668611 (Version 1)
Quarter: 2018Q4

REPORT INFORMATION
  Report Type: Spontaneous
  Country: KR (occurrence: KR)
  Receive Date: 20181129
  Receipt Date: 20181129
  Transmission Date: 20190205
  Serious: Yes (Other)
  Sender: FDA-Public Use
  Company Number: KR-TOLMAR, INC.-2018KR011781

PATIENT

DRUGS (1)
  1. ELIGARD [Suspect]
     Active Substance: LEUPROLIDE ACETATE
     Indication: PROSTATE CANCER
     Dosage: 3.75 MG, UNK
     Route: 065

REACTIONS (1)
  - Bladder outlet obstruction [Unknown]
